FAERS Safety Report 6700048-8 (Version None)
Quarter: 2010Q2

REPORT INFORMATION
  Report Type: 
  Country: None (occurrence: None)
  Receive Date: 20100428
  Receipt Date: 20100422
  Transmission Date: 20101027
  Serious: Yes (Death, Hospitalization)
  Sender: FDA-Public Use
  Company Number: FR-BRISTOL-MYERS SQUIBB COMPANY-15074982

PATIENT
  Age: 52 Year
  Sex: Male

DRUGS (4)
  1. REYATAZ [Suspect]
     Indication: HIV INFECTION
     Dates: start: 20090602
  2. KIVEXA [Suspect]
     Indication: HIV INFECTION
     Dates: start: 20090602
  3. VIREAD [Suspect]
     Indication: HIV INFECTION
     Dates: start: 20090602
  4. NORVIR [Suspect]
     Indication: HIV INFECTION
     Dates: start: 20090602

REACTIONS (7)
  - BRAIN OEDEMA [None]
  - BUNDLE BRANCH BLOCK RIGHT [None]
  - CARDIO-RESPIRATORY ARREST [None]
  - CYTOLYTIC HEPATITIS [None]
  - GRAND MAL CONVULSION [None]
  - LACTIC ACIDOSIS [None]
  - RENAL FAILURE [None]
